FAERS Safety Report 12744287 (Version 1)
Quarter: 2016Q3

REPORT INFORMATION
  Report Type: Spontaneous
  Country: FR (occurrence: FR)
  Receive Date: 20160914
  Receipt Date: 20160914
  Transmission Date: 20161109
  Serious: Yes (Other)
  Sender: FDA-Public Use
  Company Number: FR-BAXTER-2016BAX034325

PATIENT
  Age: 41 Year
  Sex: Female
  Weight: 70 kg

DRUGS (3)
  1. PHYSIONEAL 35 GLUCOSE 1,36 %,SOLUTION POUR DIALYSE P?RITON?ALE [Suspect]
     Active Substance: CALCIUM CHLORIDE\DEXTROSE MONOHYDRATE\MAGNESIUM CHLORIDE\SODIUM BICARBONATE\SODIUM CHLORIDE\SODIUM LACTATE
     Indication: PERITONEAL DIALYSIS
     Dosage: 3 UNITS
     Route: 033
     Dates: start: 20160516
  2. PHYSIONEAL 35 GLUCOSE 1,36 %,SOLUTION POUR DIALYSE P?RITON?ALE [Suspect]
     Active Substance: CALCIUM CHLORIDE\DEXTROSE MONOHYDRATE\MAGNESIUM CHLORIDE\SODIUM BICARBONATE\SODIUM CHLORIDE\SODIUM LACTATE
     Dosage: 4 UNITS
     Route: 033
  3. EXTRANEAL [Suspect]
     Active Substance: CALCIUM CHLORIDE\ICODEXTRIN\MAGNESIUM CHLORIDE\SODIUM CHLORIDE\SODIUM LACTATE
     Indication: PERITONEAL DIALYSIS
     Dosage: 1 UNIT
     Route: 033
     Dates: start: 20160516, end: 20160610

REACTIONS (3)
  - Eosinophilia [Recovered/Resolved]
  - Peritoneal cloudy effluent [Recovered/Resolved]
  - Peritonitis [Recovering/Resolving]

NARRATIVE: CASE EVENT DATE: 201605
